FAERS Safety Report 9549148 (Version 1)
Quarter: 2013Q3

REPORT INFORMATION
  Report Type: Spontaneous
  Country: US (occurrence: None)
  Receive Date: 20130923
  Receipt Date: 20130923
  Transmission Date: 20140515
  Serious: Yes (Other)
  Sender: FDA-Public Use
  Company Number: None

PATIENT
  Age: 39 Year
  Sex: Female
  Weight: 57.15 kg

DRUGS (1)
  1. JUNEL [Suspect]
     Indication: ENDOMETRIOSIS
     Route: 048
     Dates: start: 20130901, end: 20130915

REACTIONS (4)
  - Nausea [None]
  - Anxiety [None]
  - Tinnitus [None]
  - Acoustic stimulation tests abnormal [None]
